FAERS Safety Report 21920109 (Version 3)
Quarter: 2023Q2

REPORT INFORMATION
  Report Type: Spontaneous
  Country: US (occurrence: US)
  Receive Date: 20230127
  Receipt Date: 20230622
  Transmission Date: 20230722
  Serious: Yes (Other)
  Sender: FDA-Public Use
  Company Number: US-PFIZER INC-PV202300015712

PATIENT
  Age: 58 Year
  Sex: Female

DRUGS (1)
  1. XELJANZ [Suspect]
     Active Substance: TOFACITINIB CITRATE
     Indication: Colitis ulcerative
     Dosage: 10 MG, 2X/DAY
     Route: 048
     Dates: start: 202208, end: 20230609

REACTIONS (8)
  - Rectal haemorrhage [Unknown]
  - Large intestinal haemorrhage [Unknown]
  - Gastrointestinal oedema [Unknown]
  - Off label use [Unknown]
  - Incorrect product administration duration [Unknown]
  - Sleep disorder due to general medical condition, insomnia type [Unknown]
  - Condition aggravated [Unknown]
  - Colitis [Unknown]
